FAERS Safety Report 16008294 (Version 3)
Quarter: 2019Q3

REPORT INFORMATION
  Report Type: Spontaneous
  Country: GB (occurrence: GB)
  Receive Date: 20190226
  Receipt Date: 20190819
  Transmission Date: 20191004
  Serious: Yes (Other)
  Sender: FDA-Public Use
  Company Number: GB-TEVA-2019-GB-1015075

PATIENT
  Sex: Male

DRUGS (2)
  1. SERTRALINE HYDROCHLORIDE. [Concomitant]
     Active Substance: SERTRALINE HYDROCHLORIDE
     Route: 064
  2. OLANZAPINE. [Suspect]
     Active Substance: OLANZAPINE
     Indication: BIPOLAR DISORDER
     Route: 064
     Dates: start: 20130701, end: 20140827

REACTIONS (3)
  - Strabismus congenital [Unknown]
  - Foetal exposure during pregnancy [Unknown]
  - Cataract congenital [Not Recovered/Not Resolved]

NARRATIVE: CASE EVENT DATE: 20140221
